FAERS Safety Report 5530233-2 (Version None)
Quarter: 2007Q4

REPORT INFORMATION
  Report Type: 
  Country: None (occurrence: None)
  Receive Date: 20071130
  Receipt Date: 20071127
  Transmission Date: 20080405
  Serious: Yes (Life-Threatening)
  Sender: FDA-Public Use
  Company Number: DE-BRISTOL-MYERS SQUIBB COMPANY-13988019

PATIENT
  Age: 72 Year
  Sex: Female
  Weight: 63 kg

DRUGS (1)
  1. HYDROXYUREA [Suspect]
     Indication: MYELOPROLIFERATIVE DISORDER

REACTIONS (7)
  - ANGIOEDEMA [None]
  - CONDITION AGGRAVATED [None]
  - DRUG INEFFECTIVE [None]
  - GLOSSODYNIA [None]
  - RHEUMATOID ARTHRITIS [None]
  - THROMBOCYTHAEMIA [None]
  - URTICARIA [None]
